FAERS Safety Report 13272338 (Version 1)
Quarter: 2017Q1

REPORT INFORMATION
  Report Type: Report from Study
  Country: BR (occurrence: BR)
  Receive Date: 20170227
  Receipt Date: 20170227
  Transmission Date: 20170428
  Serious: Yes (Hospitalization)
  Sender: FDA-Public Use
  Company Number: PHHY2015BR111351

PATIENT
  Sex: Male
  Weight: 75 kg

DRUGS (5)
  1. RANITIDINE. [Concomitant]
     Active Substance: RANITIDINE
     Indication: ABDOMINAL PAIN UPPER
     Route: 065
  2. EXJADE [Suspect]
     Active Substance: DEFERASIROX
     Indication: SICKLE CELL ANAEMIA
     Dosage: 2 DF (15 MG/KG), QD (500 MG)
     Route: 048
     Dates: start: 201507, end: 20151202
  3. HYDROXYUREA. [Concomitant]
     Active Substance: HYDROXYUREA
     Indication: PRODUCT USED FOR UNKNOWN INDICATION
     Route: 065
  4. EXJADE [Suspect]
     Active Substance: DEFERASIROX
     Indication: HEPATITIS
     Dosage: 1000 MG, QD (500 MG BID)
     Route: 048
     Dates: start: 20151206
  5. HIDANTAL [Concomitant]
     Active Substance: PHENYTOIN SODIUM
     Indication: PRODUCT USED FOR UNKNOWN INDICATION
     Route: 065

REACTIONS (13)
  - Vomiting [Recovering/Resolving]
  - Acute respiratory distress syndrome [Unknown]
  - Acidosis [Unknown]
  - Pain [Recovered/Resolved]
  - Eating disorder [Unknown]
  - Dysphagia [Recovered/Resolved]
  - Serum ferritin increased [Unknown]
  - Abdominal pain upper [Unknown]
  - Condition aggravated [Unknown]
  - Retching [Unknown]
  - Nausea [Unknown]
  - Pain [Unknown]
  - Malaise [Unknown]
